FAERS Safety Report 10248436 (Version 2)
Quarter: 2014Q2

REPORT INFORMATION
  Report Type: Report from Study
  Country: IE (occurrence: IE)
  Receive Date: 20140620
  Receipt Date: 20140620
  Transmission Date: 20141212
  Serious: Yes (Hospitalization)
  Sender: FDA-Public Use
  Company Number: IE-BIOGENIDEC-2014BI023234

PATIENT
  Age: 4 Year
  Sex: Male
  Weight: 14 kg

DRUGS (2)
  1. RFVIIIFC [Suspect]
     Indication: FACTOR VIII DEFICIENCY
     Route: 042
     Dates: start: 20131029
  2. RFVIIIFC [Suspect]
     Indication: FACTOR VIII DEFICIENCY
     Dates: start: 20140308, end: 20140308

REACTIONS (1)
  - Body temperature increased [Recovered/Resolved]
